FAERS Safety Report 11791053 (Version 2)
Quarter: 2015Q4

REPORT INFORMATION
  Report Type: Spontaneous
  Country: US (occurrence: US)
  Receive Date: 20151201
  Receipt Date: 20151228
  Transmission Date: 20160305
  Serious: No
  Sender: FDA-Public Use
  Company Number: US-PFIZER INC-2015416801

PATIENT
  Age: 12 Year
  Sex: Female
  Weight: 40.82 kg

DRUGS (1)
  1. SERTRALINE HCL [Suspect]
     Active Substance: SERTRALINE HYDROCHLORIDE
     Indication: SOCIAL PHOBIA
     Dosage: 25 MG, UNK
     Dates: start: 20151126, end: 20151127

REACTIONS (3)
  - Hypersensitivity [Recovered/Resolved]
  - Product dosage form confusion [Unknown]
  - Accidental overdose [Unknown]

NARRATIVE: CASE EVENT DATE: 20151126
